FAERS Safety Report 6033140-4 (Version None)
Quarter: 2009Q1

REPORT INFORMATION
  Report Type: 
  Country: None (occurrence: None)
  Receive Date: 20090109
  Receipt Date: 20090107
  Transmission Date: 20090719
  Serious: Yes (Other)
  Sender: FDA-Public Use
  Company Number: JP-ASTRAZENECA-2008AP08001

PATIENT
  Age: 80 Year
  Sex: Male
  Weight: 74 kg

DRUGS (8)
  1. IRESSA [Suspect]
     Indication: NON-SMALL CELL LUNG CANCER
     Route: 048
     Dates: start: 20080930, end: 20081121
  2. IRESSA [Suspect]
     Route: 048
     Dates: start: 20081212
  3. CONIEL [Concomitant]
     Indication: ANGINA PECTORIS
     Route: 048
  4. CARDENALIN [Concomitant]
     Indication: ANGINA PECTORIS
     Route: 048
  5. ASPENON [Concomitant]
     Indication: ANGINA PECTORIS
     Route: 048
  6. ROHYPNOL [Concomitant]
     Indication: ANGINA PECTORIS
     Route: 048
  7. ALESION [Concomitant]
     Indication: ECZEMA
     Route: 048
  8. PURSENNID [Concomitant]
     Indication: CONSTIPATION
     Dosage: AS REQUIRED
     Route: 048

REACTIONS (2)
  - DERMATITIS ACNEIFORM [None]
  - HAEMATURIA [None]
